FAERS Safety Report 12998872 (Version 7)
Quarter: 2018Q1

REPORT INFORMATION
  Report Type: Spontaneous
  Country: FI (occurrence: FI)
  Receive Date: 20161205
  Receipt Date: 20180308
  Transmission Date: 20180508
  Serious: Yes (Life-Threatening)
  Sender: FDA-Public Use
  Company Number: FI-JNJFOC-20161200346

PATIENT
  Age: 23 Year
  Sex: Female

DRUGS (15)
  1. YONDELIS [Suspect]
     Active Substance: TRABECTEDIN
     Indication: SOFT TISSUE SARCOMA
     Dosage: MORE THAN 2 YEARS
     Route: 042
     Dates: start: 20140813, end: 20161013
  2. YONDELIS [Suspect]
     Active Substance: TRABECTEDIN
     Indication: LIPOSARCOMA METASTATIC
     Dosage: MORE THAN 2 YEARS
     Route: 042
     Dates: start: 20140813, end: 20161013
  3. CYCLOPHOSPHAMIDE. [Suspect]
     Active Substance: CYCLOPHOSPHAMIDE
     Indication: FIBROSARCOMA
     Route: 042
     Dates: start: 19960905, end: 19971008
  4. VINCRISTINE [Concomitant]
     Active Substance: VINCRISTINE
     Indication: NEUROBLASTOMA
     Route: 042
     Dates: start: 19961003, end: 19971006
  5. DACTINOMYCIN [Concomitant]
     Active Substance: DACTINOMYCIN
     Indication: NEUROBLASTOMA
     Route: 042
     Dates: start: 19961003, end: 19971009
  6. VINCRISTINE [Concomitant]
     Active Substance: VINCRISTINE
     Indication: FIBROSARCOMA
     Route: 042
     Dates: start: 19961003, end: 19971006
  7. ADRIAMYCIN [Concomitant]
     Active Substance: DOXORUBICIN HYDROCHLORIDE
     Indication: FIBROSARCOMA
     Route: 042
     Dates: start: 19960905, end: 19970617
  8. GEMCITABINE [Concomitant]
     Active Substance: GEMCITABINE\GEMCITABINE HYDROCHLORIDE
     Indication: LIPOSARCOMA METASTATIC
     Route: 042
     Dates: start: 20120817, end: 20120907
  9. DOCETAXEL. [Concomitant]
     Active Substance: DOCETAXEL
     Indication: LIPOSARCOMA METASTATIC
     Route: 042
     Dates: start: 20120824, end: 20120824
  10. CYCLOPHOSPHAMIDE. [Suspect]
     Active Substance: CYCLOPHOSPHAMIDE
     Indication: NEUROBLASTOMA
     Route: 042
     Dates: start: 19960905, end: 19971008
  11. IFOSFAMIDE. [Suspect]
     Active Substance: IFOSFAMIDE
     Indication: LIPOSARCOMA METASTATIC
     Dosage: 94 G
     Route: 042
     Dates: start: 20121227, end: 20140725
  12. DOXORUBICIN [Concomitant]
     Active Substance: DOXORUBICIN
     Indication: LIPOSARCOMA METASTATIC
     Route: 042
     Dates: start: 20121227, end: 20140723
  13. CISPLATIN. [Concomitant]
     Active Substance: CISPLATIN
     Indication: LIPOSARCOMA METASTATIC
     Route: 042
     Dates: start: 20121204, end: 20121205
  14. DACTINOMYCIN [Concomitant]
     Active Substance: DACTINOMYCIN
     Indication: FIBROSARCOMA
     Route: 042
     Dates: start: 19961003, end: 19971009
  15. ADRIAMYCIN [Concomitant]
     Active Substance: DOXORUBICIN HYDROCHLORIDE
     Indication: NEUROBLASTOMA
     Route: 042
     Dates: start: 19960905, end: 19970617

REACTIONS (1)
  - Acute myeloid leukaemia [Not Recovered/Not Resolved]

NARRATIVE: CASE EVENT DATE: 20161103
